FAERS Safety Report 11071566 (Version 2)
Quarter: 2015Q2

REPORT INFORMATION
  Report Type: Spontaneous
  Country: JP (occurrence: JP)
  Receive Date: 20150428
  Receipt Date: 20150602
  Transmission Date: 20150821
  Serious: Yes (Other)
  Sender: FDA-Public Use
  Company Number: JP-JNJFOC-20150311328

PATIENT
  Age: 41 Year
  Sex: Male

DRUGS (12)
  1. ZOVIRAX [Concomitant]
     Active Substance: ACYCLOVIR
     Route: 048
  2. LIVALO [Concomitant]
     Active Substance: PITAVASTATIN CALCIUM
     Route: 048
  3. MYCOSYST [Concomitant]
     Active Substance: FLUCONAZOLE
     Route: 048
  4. VELCADE [Suspect]
     Active Substance: BORTEZOMIB
     Indication: POEMS SYNDROME
     Route: 065
     Dates: start: 20130717, end: 20131002
  5. BAKTAR [Concomitant]
     Active Substance: SULFAMETHOXAZOLE\TRIMETHOPRIM
     Route: 048
  6. ZYLORIC [Concomitant]
     Active Substance: ALLOPURINOL
     Route: 048
  7. FENTANYL. [Suspect]
     Active Substance: FENTANYL
     Indication: PAIN
     Route: 062
  8. BAYASPIRIN [Concomitant]
     Active Substance: ASPIRIN
     Route: 048
  9. CYMBALTA [Concomitant]
     Active Substance: DULOXETINE HYDROCHLORIDE
     Route: 048
  10. NEXIUM [Concomitant]
     Active Substance: ESOMEPRAZOLE MAGNESIUM
     Route: 048
  11. ARTIST [Concomitant]
     Active Substance: CARVEDILOL
     Route: 048
  12. LENDORMIN [Concomitant]
     Active Substance: BROTIZOLAM
     Route: 048

REACTIONS (3)
  - Product use issue [Unknown]
  - Neuropathy peripheral [Unknown]
  - Intestinal obstruction [Recovered/Resolved]
